FAERS Safety Report 21042464 (Version 1)
Quarter: 2022Q3

REPORT INFORMATION
  Report Type: Spontaneous
  Country: US (occurrence: None)
  Receive Date: 20220701
  Receipt Date: 20220701
  Transmission Date: 20221026
  Serious: Yes (Hospitalization)
  Sender: FDA-Public Use
  Company Number: None

PATIENT
  Age: 64 Year
  Sex: Male
  Weight: 59.87 kg

DRUGS (13)
  1. MEKINIST [Suspect]
     Active Substance: TRAMETINIB DIMETHYL SULFOXIDE
     Indication: Lung carcinoma cell type unspecified stage 0
     Dosage: FREQUENCY : DAILY;?
     Route: 048
     Dates: start: 202205
  2. TAFINLAR [Suspect]
     Active Substance: DABRAFENIB MESYLATE
     Indication: Lung carcinoma cell type unspecified stage 0
     Dosage: FREQUENCY : TWICE A DAY;?
     Route: 048
     Dates: start: 202205
  3. ACETAMINOPHEN [Concomitant]
  4. ALBUTEROL [Concomitant]
     Active Substance: ALBUTEROL
  5. AMLODIPINE [Concomitant]
  6. ATORVASTATIN [Concomitant]
  7. CALCIUM [Concomitant]
     Active Substance: CALCIUM
  8. FOLIC ACID [Concomitant]
  9. HYDROCHLOROTHIAZIDE [Concomitant]
  10. HYDROCODONE-ACETAMINOPHEN [Concomitant]
  11. ONDANSETRON [Concomitant]
  12. PROMETHAZINE [Concomitant]
  13. VITAMIN B12 [Concomitant]
     Active Substance: CYANOCOBALAMIN

REACTIONS (1)
  - Pleural effusion [None]
